FAERS Safety Report 5075798-2 (Version None)
Quarter: 2006Q3

REPORT INFORMATION
  Report Type: 
  Country: None (occurrence: None)
  Receive Date: 20060809
  Receipt Date: 20060807
  Transmission Date: 20061208
  Serious: Yes (Other)
  Sender: FDA-Public Use
  Company Number: US-GLAXOSMITHKLINE-A0615611A

PATIENT
  Age: 52 Year
  Sex: Female

DRUGS (2)
  1. ZYBAN [Suspect]
     Indication: SMOKING CESSATION THERAPY
     Dosage: 150MG PER DAY
     Route: 048
     Dates: start: 19980901, end: 19981001
  2. NO CONCURRENT MEDICATION [Concomitant]

REACTIONS (3)
  - CARDIOMYOPATHY [None]
  - HYPERTENSION [None]
  - TACHYCARDIA [None]
